FAERS Safety Report 9854911 (Version 1)
Quarter: 2013Q4

REPORT INFORMATION
  Report Type: Spontaneous
  Country: US (occurrence: None)
  Receive Date: 20131226
  Receipt Date: 20131226
  Transmission Date: 20140711
  Serious: Yes (Other)
  Sender: FDA-Public Use
  Company Number: PHEH2013US014020

PATIENT
  Sex: Female

DRUGS (1)
  1. AFINITOR (RAD) UNKNOWN [Suspect]
     Indication: RENAL NEOPLASM
     Dosage: UNK

REACTIONS (3)
  - Pneumonia [None]
  - Convulsion [None]
  - Body temperature increased [None]
